FAERS Safety Report 5074548-3 (Version None)
Quarter: 2006Q3

REPORT INFORMATION
  Report Type: 
  Country: None (occurrence: None)
  Receive Date: 20060803
  Receipt Date: 20060722
  Transmission Date: 20061208
  Serious: Yes (Other)
  Sender: FDA-Public Use
  Company Number: 2006090555

PATIENT
  Age: 56 Year
  Sex: Female
  Weight: 189.15 kg

DRUGS (15)
  1. ZITHROMAX [Suspect]
     Indication: PNEUMONIA
     Dosage: 500 MG (250 MG, 2 IN 1 D), UNKNOWN
     Route: 065
     Dates: start: 20060703
  2. METFORMIN [Concomitant]
  3. ATENOLOL [Concomitant]
  4. HYDROCHLOROTHIAZIDE [Concomitant]
  5. ACCUPRIL [Concomitant]
  6. GLIPIZIDE [Concomitant]
  7. VITAMINS (VITAMINS) [Concomitant]
  8. . [Suspect]
  9. . [Concomitant]
  10. . [Concomitant]
  11. . [Concomitant]
  12. . [Concomitant]
  13. . [Concomitant]
  14. . [Concomitant]
  15. . [Concomitant]

REACTIONS (6)
  - ANOSMIA [None]
  - DYSGEUSIA [None]
  - FEELING ABNORMAL [None]
  - HEARING IMPAIRED [None]
  - HYPOAESTHESIA [None]
  - PANIC ATTACK [None]
